FAERS Safety Report 7303957-4 (Version None)
Quarter: 2011Q1

REPORT INFORMATION
  Report Type: 
  Country: None (occurrence: None)
  Receive Date: 20110221
  Receipt Date: 20110202
  Transmission Date: 20110831
  Serious: No
  Sender: FDA-Public Use
  Company Number: JP-ROCHE-760725

PATIENT

DRUGS (1)
  1. TAMIFLU [Suspect]
     Route: 048

REACTIONS (2)
  - OVERDOSE [None]
  - NO ADVERSE EVENT [None]
